FAERS Safety Report 7733061-2 (Version None)
Quarter: 2011Q3

REPORT INFORMATION
  Report Type: 
  Country: None (occurrence: None)
  Receive Date: 20110907
  Receipt Date: 20110903
  Transmission Date: 20111222
  Serious: No
  Sender: FDA-Public Use
  Company Number: US-PFIZER INC-2011206140

PATIENT
  Sex: Female

DRUGS (3)
  1. TRAZODONE HCL [Suspect]
     Dosage: 37.5 MG, DAILY
     Route: 048
     Dates: start: 20110901, end: 20110902
  2. EFFEXOR XR [Suspect]
     Dosage: 150 MG, DAILY
     Route: 048
  3. EFFEXOR XR [Suspect]
     Dosage: UNK
     Route: 048
     Dates: start: 20110903

REACTIONS (4)
  - INSOMNIA [None]
  - DRUG DISPENSING ERROR [None]
  - ANXIETY [None]
  - FEELING ABNORMAL [None]
